FAERS Safety Report 10275125 (Version 3)
Quarter: 2014Q3

REPORT INFORMATION
  Report Type: Spontaneous
  Country: DE (occurrence: DE)
  Receive Date: 20140703
  Receipt Date: 20140807
  Transmission Date: 20150326
  Serious: Yes (Hospitalization, Other)
  Sender: FDA-Public Use
  Company Number: DE-UCBSA-2014003710

PATIENT
  Age: 88 Year
  Sex: Female

DRUGS (9)
  1. KALIUM [Concomitant]
     Dosage: UNK
  2. VIGANTOLETTEN [Suspect]
     Active Substance: CHOLECALCIFEROL
     Dosage: 1000 IU, ONCE DAILY (QD)
     Route: 048
  3. VIMPAT [Suspect]
     Active Substance: LACOSAMIDE
     Indication: EPILEPSY
     Dosage: 200 MG, 2X/DAY (BID)
     Route: 048
     Dates: start: 20140324, end: 20140625
  4. QUETIAPIN [Concomitant]
     Active Substance: QUETIAPINE
     Dosage: 12.5 MG, ONCE DAILY (QD)
     Route: 048
  5. CALCIUM [Concomitant]
     Active Substance: CALCIUM
     Dosage: 500 MG, 2X/DAY (BID)
  6. TAMOXIFEN [Concomitant]
     Active Substance: TAMOXIFEN
     Indication: BREAST CANCER
     Dosage: 20 MG, ONCE DAILY (QD)
     Route: 048
  7. MARCUMAR [Concomitant]
     Active Substance: PHENPROCOUMON
     Dosage: UNKNOWN DOSE
  8. KEPPRA [Suspect]
     Active Substance: LEVETIRACETAM
     Indication: EPILEPSY
     Dosage: 1500 MG, 2X/DAY (BID)
  9. PANTOPRAZOLE [Concomitant]
     Active Substance: PANTOPRAZOLE SODIUM
     Dosage: 40 MG, ONCE DAILY (QD)
     Route: 048

REACTIONS (4)
  - Hypokalaemia [Recovering/Resolving]
  - Ventricular tachycardia [Recovered/Resolved]
  - Tachycardia [Recovered/Resolved]
  - Status epilepticus [Recovered/Resolved]

NARRATIVE: CASE EVENT DATE: 20140529
